FAERS Safety Report 19646736 (Version 1)
Quarter: 2021Q3

REPORT INFORMATION
  Report Type: Spontaneous
  Country: US (occurrence: US)
  Receive Date: 20210802
  Receipt Date: 20210802
  Transmission Date: 20211014
  Serious: Yes (Other)
  Sender: FDA-Public Use
  Company Number: None

PATIENT
  Age: 68 Year
  Sex: Female
  Weight: 55.4 kg

DRUGS (5)
  1. TUMS [Concomitant]
     Active Substance: CALCIUM CARBONATE
  2. CALQUENCE [Suspect]
     Active Substance: ACALABRUTINIB
     Indication: CHRONIC LYMPHOCYTIC LEUKAEMIA
     Route: 048
     Dates: start: 20210414, end: 20210614
  3. ACYCLOVIR. [Concomitant]
     Active Substance: ACYCLOVIR
  4. ATORVASTATIN [Concomitant]
     Active Substance: ATORVASTATIN
  5. PROAIR HFA [Concomitant]
     Active Substance: ALBUTEROL SULFATE

REACTIONS (13)
  - Platelet disorder [None]
  - Transaminases increased [None]
  - Pancytopenia [None]
  - Dyspnoea exertional [None]
  - Fatigue [None]
  - Decreased appetite [None]
  - Arthralgia [None]
  - Dermatitis [None]
  - Dyspnoea [None]
  - Abdominal distension [None]
  - Haemoglobin abnormal [None]
  - Blood sodium abnormal [None]
  - AST/ALT ratio abnormal [None]

NARRATIVE: CASE EVENT DATE: 20210426
